FAERS Safety Report 7900352-1 (Version None)
Quarter: 2011Q4

REPORT INFORMATION
  Report Type: 
  Country: None (occurrence: None)
  Receive Date: 20111108
  Receipt Date: 20111103
  Transmission Date: 20120403
  Serious: No
  Sender: FDA-Public Use
  Company Number: US-PFIZER INC-2011269860

PATIENT
  Sex: Female
  Weight: 136.05 kg

DRUGS (6)
  1. AZITHROMYCIN [Suspect]
     Indication: SINUSITIS
     Dosage: 250 MG, 2X/DAY
     Dates: start: 20111021
  2. FLUOXETINE HYDROCHLORIDE [Concomitant]
     Indication: ANXIETY
     Dosage: UNK
  3. ADVAIR DISKUS 100/50 [Concomitant]
     Indication: ASTHMA
     Dosage: UNK
  4. SYNTHROID [Concomitant]
     Indication: THYROID DISORDER
     Dosage: UNK
  5. AZITHROMYCIN [Suspect]
     Dosage: 250 MG, 1X/DAY
     Dates: start: 20111022, end: 20111001
  6. ASTHALIN [Concomitant]
     Indication: SINUSITIS
     Dosage: UNK

REACTIONS (4)
  - GAIT DISTURBANCE [None]
  - MALAISE [None]
  - MUSCULAR WEAKNESS [None]
  - MYALGIA [None]
